FAERS Safety Report 5344310-2 (Version None)
Quarter: 2007Q2

REPORT INFORMATION
  Report Type: 
  Country: None (occurrence: None)
  Receive Date: 20070604
  Receipt Date: 20070525
  Transmission Date: 20071010
  Serious: Yes (Other)
  Sender: FDA-Public Use
  Company Number: AU-ASTRAZENECA-2007AP03194

PATIENT
  Age: 73 Year
  Sex: Female

DRUGS (5)
  1. ATACAND [Suspect]
     Indication: HYPERTENSION
     Route: 048
     Dates: start: 20060201
  2. ATACAND [Suspect]
     Route: 048
  3. ATACAND [Suspect]
     Route: 048
  4. ATACAND [Suspect]
     Route: 048
  5. HERBAL MEDICATION [Concomitant]

REACTIONS (3)
  - MUSCLE ATROPHY [None]
  - MUSCLE INJURY [None]
  - STENT PLACEMENT [None]
